FAERS Safety Report 9052117 (Version 1)
Quarter: 2013Q1

REPORT INFORMATION
  Report Type: Spontaneous
  Country: US (occurrence: None)
  Receive Date: 20130131
  Receipt Date: 20130131
  Transmission Date: 20140127
  Serious: Yes (Life-Threatening)
  Sender: FDA-Public Use
  Company Number: None

PATIENT
  Age: 65 Year
  Sex: Female

DRUGS (2)
  1. LANSOPRAZOLE DR 30 MG, DR. REDDY^S [Suspect]
     Indication: GASTROOESOPHAGEAL REFLUX DISEASE
     Route: 048
     Dates: start: 20120504, end: 20120711
  2. LANSOPRAZOLE DR 30 MG, DR. REDDY^S [Suspect]
     Indication: GASTROOESOPHAGEAL REFLUX DISEASE
     Route: 048
     Dates: start: 20120504, end: 20120711

REACTIONS (10)
  - Product substitution issue [None]
  - Abdominal discomfort [None]
  - Gastrointestinal disorder [None]
  - Malaise [None]
  - Decreased appetite [None]
  - Decreased appetite [None]
  - Weight decreased [None]
  - Eating disorder [None]
  - Asthenia [None]
  - Toxicity to various agents [None]
